FAERS Safety Report 6942967-3 (Version None)
Quarter: 2010Q3

REPORT INFORMATION
  Report Type: 
  Country: None (occurrence: None)
  Receive Date: 20100823
  Receipt Date: 20100813
  Transmission Date: 20110219
  Serious: Yes (Hospitalization, Other)
  Sender: FDA-Public Use
  Company Number: 104575

PATIENT
  Age: 31 Year
  Sex: Male

DRUGS (1)
  1. BUPROPION HCL INJ. 0.3MG/ML (1ML) - BEDFORD LABS, INC. [Suspect]

REACTIONS (10)
  - DRUG ABUSE [None]
  - ESCHAR [None]
  - INCORRECT ROUTE OF DRUG ADMINISTRATION [None]
  - MEDICATION ERROR [None]
  - PENIS DISORDER [None]
  - SCROTAL DISORDER [None]
  - SKIN LESION [None]
  - SKIN NECROSIS [None]
  - STREPTOCOCCUS TEST POSITIVE [None]
  - ULCER [None]
